FAERS Safety Report 4466957-8 (Version None)
Quarter: 2004Q4

REPORT INFORMATION
  Report Type: 
  Country: None (occurrence: None)
  Receive Date: 20041006
  Receipt Date: 20040929
  Transmission Date: 20050328
  Serious: Yes (Other)
  Sender: FDA-Public Use
  Company Number: 200419721GDDC

PATIENT
  Age: 54 Year
  Sex: Male
  Weight: 127.3 kg

DRUGS (3)
  1. GAVISCON [Suspect]
     Indication: GASTROOESOPHAGEAL REFLUX DISEASE
     Dosage: DOSE: UNK
     Route: 048
     Dates: start: 20040301
  2. SERTRALINE HYDROCHLORIDE [Concomitant]
     Dosage: DOSE: UNK
  3. CARDIOVASCULAR SYSTEM DRUGS [Concomitant]
     Dosage: DOSE: UNK

REACTIONS (3)
  - DIZZINESS [None]
  - NEPHROLITHIASIS [None]
  - PAIN IN EXTREMITY [None]
